FAERS Safety Report 8360644-1 (Version None)
Quarter: 2012Q2

REPORT INFORMATION
  Report Type: 
  Country: None (occurrence: None)
  Receive Date: 20120515
  Receipt Date: 20120504
  Transmission Date: 20120825
  Serious: No
  Sender: FDA-Public Use
  Company Number: US-ASTRAZENECA-2012SE29351

PATIENT
  Age: 55 Year
  Sex: Female

DRUGS (3)
  1. LISINOPRIL [Concomitant]
  2. NEXIUM [Suspect]
     Route: 048
  3. TRAZODONE HCL [Concomitant]

REACTIONS (2)
  - ADVERSE EVENT [None]
  - INTENTIONAL DRUG MISUSE [None]
